FAERS Safety Report 9696053 (Version 4)
Quarter: 2014Q1

REPORT INFORMATION
  Report Type: Spontaneous
  Country: IT (occurrence: IT)
  Receive Date: 20131119
  Receipt Date: 20140121
  Transmission Date: 20141002
  Serious: Yes (Hospitalization)
  Sender: FDA-Public Use
  Company Number: CHNY2013IT002571

PATIENT
  Sex: Male

DRUGS (10)
  1. IBUPROFEN [Suspect]
     Indication: PAIN
     Dosage: 2 DF, QD
     Route: 048
     Dates: start: 20130910, end: 20130929
  2. ACETYLSALICYLIC ACID [Suspect]
     Indication: MYOCARDIAL ISCHAEMIA
     Dosage: 100 MG, QD
     Dates: start: 20130101, end: 20131001
  3. ACETYLSALICYLIC ACID [Suspect]
     Indication: OFF LABEL USE
  4. EFIENT [Suspect]
     Indication: MYOCARDIAL ISCHAEMIA
     Dosage: UNK
     Route: 048
     Dates: start: 20130101, end: 20131001
  5. ANGIZEM [Concomitant]
     Dates: start: 20130928, end: 20131001
  6. ANGIZEM [Concomitant]
     Dosage: UNK
  7. ATORVASTATIN CALCIUM TRIHYDRATE [Concomitant]
  8. AMIODARONE HYDROCHLORIDE [Concomitant]
  9. PANTOPRAZOLE SODIUM [Concomitant]
     Dosage: UNK
     Dates: start: 20130928, end: 20131001
  10. VALSARTAN [Concomitant]

REACTIONS (2)
  - Anaemia [Recovering/Resolving]
  - Melaena [Recovering/Resolving]
